FAERS Safety Report 9228640 (Version 1)
Quarter: 2013Q2

REPORT INFORMATION
  Report Type: Spontaneous
  Country: DE (occurrence: CR)
  Receive Date: 20130412
  Receipt Date: 20130412
  Transmission Date: 20140414
  Serious: Yes (Death, Hospitalization)
  Sender: FDA-Public Use
  Company Number: DE-ROCHE-GNE200864

PATIENT
  Age: 74 Year
  Sex: Male
  Weight: 85 kg

DRUGS (4)
  1. METALYSE [Suspect]
     Indication: THROMBOPHLEBITIS
     Dosage: UNK, SINGLE
     Route: 040
     Dates: start: 20030325, end: 20030325
  2. PIRACETAM [Concomitant]
     Route: 048
  3. ACETYLSALICYLIC ACID [Concomitant]
     Route: 048
  4. PRAVASTATIN SODIUM [Concomitant]
     Route: 048

REACTIONS (5)
  - Haemorrhagic stroke [Fatal]
  - Mouth haemorrhage [Unknown]
  - Epistaxis [Unknown]
  - Injection site haemorrhage [Unknown]
  - Headache [Unknown]
